FAERS Safety Report 4280805-0 (Version None)
Quarter: 2004Q1

REPORT INFORMATION
  Report Type: 
  Country: None (occurrence: None)
  Receive Date: 20040127
  Receipt Date: 20040106
  Transmission Date: 20041129
  Serious: No
  Sender: FDA-Public Use
  Company Number: A01200400076

PATIENT
  Age: 52 Year
  Sex: Male

DRUGS (2)
  1. (AMIODARONE) - UNKNOWN - UNIT DOSE : UNKNOWN [Suspect]
     Indication: VENTRICULAR TACHYCARDIA
  2. NADOLOL [Concomitant]

REACTIONS (3)
  - ATRIAL FIBRILLATION [None]
  - CARDIAC FAILURE CONGESTIVE [None]
  - HYPERTHYROIDISM [None]
